FAERS Safety Report 18423447 (Version 1)
Quarter: 2020Q4

REPORT INFORMATION
  Report Type: Report from Study
  Country: CA (occurrence: CA)
  Receive Date: 20201023
  Receipt Date: 20201023
  Transmission Date: 20210114
  Serious: Yes (Other)
  Sender: FDA-Public Use
  Company Number: CA-JNJFOC-20201022492

PATIENT
  Sex: Male

DRUGS (1)
  1. REMICADE [Suspect]
     Active Substance: INFLIXIMAB
     Indication: CROHN^S DISEASE
     Dosage: RECEIVED 118TH INFLIXIMAB INFUSION ON 13-OCT-2020
     Route: 042
     Dates: start: 20100201

REACTIONS (2)
  - Intestinal resection [Unknown]
  - Abdominal hernia infection [Recovering/Resolving]
